FAERS Safety Report 16049383 (Version 1)
Quarter: 2019Q1

REPORT INFORMATION
  Report Type: Spontaneous
  Country: US (occurrence: US)
  Receive Date: 20190307
  Receipt Date: 20190307
  Transmission Date: 20190418
  Serious: Yes (Other)
  Sender: FDA-Public Use
  Company Number: US-009507513-1903USA001850

PATIENT
  Sex: Female

DRUGS (5)
  1. GLIMEPIRIDE. [Suspect]
     Active Substance: GLIMEPIRIDE
  2. JANUVIA [Suspect]
     Active Substance: SITAGLIPTIN PHOSPHATE
     Dosage: UNK
     Route: 048
  3. TOUJEO [Suspect]
     Active Substance: INSULIN GLARGINE
     Dosage: 10 UNITS
     Dates: start: 201901, end: 20190224
  4. TOUJEO [Suspect]
     Active Substance: INSULIN GLARGINE
     Dosage: 30 UNITS IN THE MORNING
     Dates: start: 20190225
  5. METFORMIN [Suspect]
     Active Substance: METFORMIN HYDROCHLORIDE

REACTIONS (6)
  - Diabetes mellitus inadequate control [Unknown]
  - Blood glucose increased [Unknown]
  - Diarrhoea [Unknown]
  - Muscle spasms [Unknown]
  - Abdominal pain upper [Unknown]
  - Hunger [Unknown]
